FAERS Safety Report 8341189-1 (Version None)
Quarter: 2012Q2

REPORT INFORMATION
  Report Type: 
  Country: None (occurrence: None)
  Receive Date: 20120507
  Receipt Date: 20120426
  Transmission Date: 20120825
  Serious: Yes (Hospitalization)
  Sender: FDA-Public Use
  Company Number: BR-ASTRAZENECA-2009UW17915

PATIENT
  Age: 65 Year
  Sex: Male
  Weight: 85 kg

DRUGS (4)
  1. ASPIRA PREVENT [Concomitant]
     Indication: ANTICOAGULANT THERAPY
     Route: 048
     Dates: start: 20050101
  2. ATACAND HCT [Suspect]
     Indication: HYPERTENSION
     Dosage: 16/12.5 MG ONCE DAILY
     Route: 048
     Dates: start: 20050101
  3. CRESTOR [Suspect]
     Indication: HYPERCHOLESTEROLAEMIA
     Route: 048
     Dates: start: 20050101, end: 20090625
  4. ATACAND [Suspect]
     Route: 048

REACTIONS (8)
  - HYPERTENSION [None]
  - DRUG INEFFECTIVE [None]
  - CATARACT [None]
  - HERPES ZOSTER [None]
  - DIARRHOEA [None]
  - MUSCULOSKELETAL PAIN [None]
  - BLOOD CREATINE PHOSPHOKINASE INCREASED [None]
  - MYALGIA [None]
